FAERS Safety Report 5670163-9 (Version None)
Quarter: 2008Q1

REPORT INFORMATION
  Report Type: 
  Country: None (occurrence: None)
  Receive Date: 20080312
  Receipt Date: 20080226
  Transmission Date: 20080703
  Serious: Yes (Hospitalization)
  Sender: FDA-Public Use
  Company Number: 2008BI004850

PATIENT
  Age: 39 Year
  Sex: Female
  Weight: 52 kg

DRUGS (1)
  1. AVONEX [Suspect]
     Indication: MULTIPLE SCLEROSIS
     Dosage: 30 UG;QW;IM
     Route: 030
     Dates: start: 20070601

REACTIONS (6)
  - COUGH [None]
  - DISEASE PROGRESSION [None]
  - FALL [None]
  - FEELING ABNORMAL [None]
  - MULTIPLE SCLEROSIS [None]
  - NASOPHARYNGITIS [None]
